FAERS Safety Report 9525523 (Version 6)
Quarter: 2014Q1

REPORT INFORMATION
  Report Type: Spontaneous
  Country: US (occurrence: US)
  Receive Date: 20130916
  Receipt Date: 20140314
  Transmission Date: 20141002
  Serious: Yes (Death, Hospitalization, Other)
  Sender: FDA-Public Use
  Company Number: US-BAXTER-2013BAX035782

PATIENT
  Age: 72 Year
  Sex: Male

DRUGS (3)
  1. DIANEAL LOW CALCIUM [Suspect]
     Indication: RENAL FAILURE CHRONIC
     Route: 033
  2. DIANEAL LOW CALCIUM [Suspect]
     Route: 033
  3. DIANEAL LOW CALCIUM [Suspect]
     Indication: RENAL FAILURE CHRONIC
     Route: 033

REACTIONS (8)
  - Brain neoplasm malignant [Fatal]
  - Lung neoplasm [Recovered/Resolved]
  - Pulmonary mass [Unknown]
  - Neoplasm malignant [Unknown]
  - Infection [Recovering/Resolving]
  - Clostridium difficile infection [Recovering/Resolving]
  - Hypotension [Recovering/Resolving]
  - Hypertension [Unknown]
